FAERS Safety Report 9851199 (Version 2)
Quarter: 2014Q1

REPORT INFORMATION
  Report Type: Spontaneous
  Country: US (occurrence: US)
  Receive Date: 20140128
  Receipt Date: 20140131
  Transmission Date: 20141002
  Serious: Yes (Other)
  Sender: FDA-Public Use
  Company Number: US-BMSGILMSD-2014-0092932

PATIENT
  Age: 74 Year
  Sex: Male

DRUGS (1)
  1. ATRIPLA [Suspect]
     Indication: HIV INFECTION
     Dosage: 1 DF, QD
     Route: 065

REACTIONS (2)
  - Nephrolithiasis [Recovered/Resolved]
  - Diarrhoea [Not Recovered/Not Resolved]
